FAERS Safety Report 12712702 (Version 1)
Quarter: 2016Q3

REPORT INFORMATION
  Report Type: Spontaneous
  Country: GB (occurrence: GB)
  Receive Date: 20160902
  Receipt Date: 20160902
  Transmission Date: 20161109
  Serious: Yes (Other)
  Sender: FDA-Public Use
  Company Number: GB-TEVA-687753ACC

PATIENT
  Age: 67 Year
  Sex: Female
  Weight: 49.1 kg

DRUGS (20)
  1. FONDAPARINUX [Concomitant]
     Active Substance: FONDAPARINUX
  2. PABRINEX [Concomitant]
  3. MIRTAZAPINE. [Concomitant]
     Active Substance: MIRTAZAPINE
  4. RANITIDINE. [Concomitant]
     Active Substance: RANITIDINE
  5. BISOPROLOL [Concomitant]
     Active Substance: BISOPROLOL
  6. DALTEPARIN [Concomitant]
     Active Substance: DALTEPARIN
  7. DIAZEPAM. [Concomitant]
     Active Substance: DIAZEPAM
  8. GTN [Concomitant]
     Active Substance: NITROGLYCERIN
  9. SERTRALINE [Concomitant]
     Active Substance: SERTRALINE HYDROCHLORIDE
  10. ASPIRIN. [Concomitant]
     Active Substance: ASPIRIN
  11. CALCEOS [Concomitant]
     Active Substance: CALCIUM CARBONATE\CHOLECALCIFEROL
  12. THIAMINE. [Concomitant]
     Active Substance: THIAMINE
  13. ATORVASTATIN [Concomitant]
     Active Substance: ATORVASTATIN
  14. NICOTINE. [Concomitant]
     Active Substance: NICOTINE
  15. PARACETAMOL [Concomitant]
     Active Substance: ACETAMINOPHEN
  16. TAZOCIN [Concomitant]
     Active Substance: PIPERACILLIN SODIUM\TAZOBACTAM SODIUM
  17. METOCLOPRAMIDE. [Suspect]
     Active Substance: METOCLOPRAMIDE
     Indication: NAUSEA
     Dosage: 30 MILLIGRAM DAILY;
     Route: 048
     Dates: start: 20160730, end: 20160811
  18. BUPRENORPHINE. [Concomitant]
     Active Substance: BUPRENORPHINE
  19. METOCLOPRAMIDE. [Suspect]
     Active Substance: METOCLOPRAMIDE
  20. CLOPIDOGREL [Concomitant]
     Active Substance: CLOPIDOGREL BISULFATE

REACTIONS (1)
  - Electrocardiogram QT prolonged [Unknown]

NARRATIVE: CASE EVENT DATE: 20160806
